FAERS Safety Report 26148434 (Version 1)
Quarter: 2025Q4

REPORT INFORMATION
  Report Type: Spontaneous
  Country: US (occurrence: US)
  Receive Date: 20251212
  Receipt Date: 20251212
  Transmission Date: 20260117
  Serious: Yes (Hospitalization, Other)
  Sender: STRIDES
  Company Number: US-STRIDES ARCOLAB LIMITED-2025SP015441

PATIENT
  Age: 38 Year
  Sex: Male

DRUGS (2)
  1. CABERGOLINE [Suspect]
     Active Substance: CABERGOLINE
     Indication: Prolactin-producing pituitary tumour
     Dosage: 0.5 MILLIGRAM,2 TIMES A WEEK
     Route: 065
  2. CABERGOLINE [Suspect]
     Active Substance: CABERGOLINE
     Dosage: DOSE DECREASED TO 0.25 MILLIGRAM, ONCE A WEEK
     Route: 065

REACTIONS (6)
  - Cerebrospinal fluid leakage [Unknown]
  - Infarction [Unknown]
  - Haematoma [Unknown]
  - Intracranial hypotension [Unknown]
  - Cerebral disorder [Unknown]
  - Rhinorrhoea [Recovered/Resolved]
